FAERS Safety Report 9498817 (Version 2)
Quarter: 2013Q3

REPORT INFORMATION
  Report Type: Spontaneous
  Country: AU (occurrence: AU)
  Receive Date: 20130904
  Receipt Date: 20130904
  Transmission Date: 20140515
  Serious: Yes (Disabling, Other)
  Sender: FDA-Public Use
  Company Number: AU-PFIZER INC-2013226694

PATIENT
  Age: 83 Year
  Sex: Female
  Weight: 51 kg

DRUGS (3)
  1. XALATAN [Suspect]
     Indication: GLAUCOMA
     Dosage: NIGHTLY
     Route: 047
     Dates: start: 2009
  2. CALCIUM [Concomitant]
     Indication: OSTEOPOROSIS
     Dosage: DAILY
     Route: 048
     Dates: start: 2008
  3. MAGNESIUM [Concomitant]
     Indication: MUSCLE SPASMS
     Dosage: NIGHTLY
     Route: 048
     Dates: start: 2008

REACTIONS (4)
  - Pharyngeal disorder [Recovered/Resolved]
  - Salivary hypersecretion [Recovered/Resolved]
  - Oropharyngeal pain [Recovered/Resolved]
  - Cough [Recovered/Resolved]
